FAERS Safety Report 23247213 (Version 1)
Quarter: 2023Q4

REPORT INFORMATION
  Report Type: Report from Study
  Country: HK (occurrence: None)
  Receive Date: 20231130
  Receipt Date: 20231130
  Transmission Date: 20240109
  Serious: Yes (Hospitalization)
  Sender: FDA-Public Use
  Company Number: 2023A262470

PATIENT
  Age: 69 Year
  Sex: Male
  Weight: 56 kg

DRUGS (18)
  1. CILGAVIMAB\TIXAGEVIMAB [Suspect]
     Active Substance: CILGAVIMAB\TIXAGEVIMAB
     Indication: COVID-19 prophylaxis
     Dosage: 600.0MG ONCE/SINGLE ADMINISTRATION
     Route: 030
     Dates: start: 20221109, end: 20221109
  2. HYOSCINE METHOBROMIDE [Concomitant]
     Indication: Symptomatic treatment
     Route: 048
     Dates: start: 20230517, end: 20230815
  3. SENNA [Concomitant]
     Active Substance: SENNA LEAF\SENNOSIDES\SENNOSIDES A AND B
     Indication: Nutritional supplementation
     Dosage: AS REQUIRED
     Route: 048
     Dates: start: 20220118
  4. POTASSIUM CHLORIDE [Concomitant]
     Active Substance: POTASSIUM CHLORIDE
     Indication: Nutritional supplementation
     Route: 048
     Dates: start: 20220826
  5. AGIOLAX [Concomitant]
     Indication: Nutritional supplementation
     Route: 048
     Dates: start: 20230426
  6. ACETAMINOPHEN [Concomitant]
     Active Substance: ACETAMINOPHEN
     Indication: Prophylaxis
     Dosage: AS NEEDED
     Route: 048
     Dates: start: 20220823
  7. ATORVASTATIN [Concomitant]
     Active Substance: ATORVASTATIN
     Indication: Prophylaxis
     Route: 048
     Dates: start: 20230417
  8. TAMSULOSIN HYDROCHLORIDE [Concomitant]
     Active Substance: TAMSULOSIN HYDROCHLORIDE
     Indication: Symptomatic treatment
     Route: 048
     Dates: start: 20230524
  9. LACTULOSE [Concomitant]
     Active Substance: LACTULOSE
     Indication: Symptomatic treatment
     Dosage: AS NEEDED
     Route: 048
     Dates: start: 20220824, end: 20230820
  10. DIMETHYLPOLYSILOXANE [Concomitant]
     Indication: Symptomatic treatment
     Route: 048
     Dates: start: 20221214
  11. CHLORPHENIRAMINE MALEATE [Concomitant]
     Active Substance: CHLORPHENIRAMINE MALEATE
     Indication: Symptomatic treatment
     Route: 048
     Dates: start: 20221011
  12. FOLIC ACID [Concomitant]
     Active Substance: FOLIC ACID
     Indication: Nutritional supplementation
     Route: 048
     Dates: start: 20211202
  13. COTRIMOXAZOLE [Concomitant]
     Active Substance: SULFAMETHOXAZOLE\TRIMETHOPRIM
     Indication: Lower urinary tract symptoms
     Dosage: AS NEEDED
     Route: 048
     Dates: start: 20220823
  14. HEPARINOID [Concomitant]
     Indication: Symptomatic treatment
     Dosage: AS NEEDED
     Route: 061
     Dates: start: 20220222, end: 20230826
  15. FLEET ENEMA [Concomitant]
     Active Substance: SODIUM PHOSPHATE, DIBASIC\SODIUM PHOSPHATE, MONOBASIC
     Indication: Symptomatic treatment
     Dosage: AS NEEDED
     Route: 054
     Dates: start: 20230410
  16. BISACODYL [Concomitant]
     Active Substance: BISACODYL
     Indication: Symptomatic treatment
     Dosage: AS NEEDED
     Route: 054
     Dates: start: 20220825
  17. CYANOCOBALAMIN [Concomitant]
     Active Substance: CYANOCOBALAMIN
     Indication: Nutritional supplementation
     Route: 049
     Dates: start: 20230707, end: 20230905
  18. ACYCLOVIR [Concomitant]
     Active Substance: ACYCLOVIR
     Indication: Nutritional supplementation
     Route: 048
     Dates: start: 20220822

REACTIONS (3)
  - Neutropenic sepsis [Recovered/Resolved]
  - Clostridium difficile colitis [Recovered/Resolved]
  - Adjustment disorder [Recovered/Resolved]

NARRATIVE: CASE EVENT DATE: 20230731
